FAERS Safety Report 15406460 (Version 1)
Quarter: 2018Q4

REPORT INFORMATION
  Report Type: Spontaneous
  Country: US (occurrence: US)
  Receive Date: 20180920
  Receipt Date: 20180920
  Transmission Date: 20190204
  Serious: Yes (Hospitalization)
  Sender: FDA-Public Use
  Company Number: US-LPDUSPRD-20181692

PATIENT
  Age: 69 Year
  Sex: Female

DRUGS (4)
  1. DOPAMINE HCL INJECTION, USP (1305-25) [Suspect]
     Active Substance: DOPAMINE HYDROCHLORIDE
     Dosage: UNKNOWN
     Route: 042
  2. FLUID BOLUSES [Suspect]
     Active Substance: UNSPECIFIED INGREDIENT
     Dosage: UNKNOWN
     Route: 040
  3. MAINTENCE FLUID [Suspect]
     Active Substance: UNSPECIFIED INGREDIENT
     Dosage: UNKNOWN
     Route: 042
  4. NOREPINEPHRINE. [Suspect]
     Active Substance: NOREPINEPHRINE
     Dosage: UNKNOWN
     Route: 042

REACTIONS (2)
  - Product use in unapproved indication [Unknown]
  - Posterior reversible encephalopathy syndrome [Recovered/Resolved]
